FAERS Safety Report 5923046-0 (Version None)
Quarter: 2008Q4

REPORT INFORMATION
  Report Type: 
  Country: None (occurrence: None)
  Receive Date: 20081018
  Receipt Date: 20081007
  Transmission Date: 20090506
  Serious: Yes (Hospitalization, Other)
  Sender: FDA-Public Use
  Company Number: JP-PFIZER INC-2008083103

PATIENT
  Age: 56 Year
  Sex: Male
  Weight: 48.6 kg

DRUGS (4)
  1. METHYLPREDNISOLONE 16MG TAB [Suspect]
  2. HYDROCORTISONE 10MG TAB [Suspect]
     Indication: POSTOPERATIVE CARE
  3. TACROLIMUS [Concomitant]
  4. PREDNISOLONE [Concomitant]

REACTIONS (2)
  - CORONARY ARTERY DISEASE [None]
  - RENAL IMPAIRMENT [None]
